FAERS Safety Report 5043278-6 (Version None)
Quarter: 2006Q3

REPORT INFORMATION
  Report Type: 
  Country: None (occurrence: None)
  Receive Date: 20060703
  Receipt Date: 20060703
  Transmission Date: 20061208
  Serious: No
  Sender: FDA-Public Use
  Company Number: None

PATIENT
  Sex: Female
  Weight: 66.2252 kg

DRUGS (2)
  1. PAROXETINE [Suspect]
     Indication: MAJOR DEPRESSION
     Dosage: 20MG  Q DAY PO
     Route: 048
     Dates: start: 20060106, end: 20060309
  2. DIPHENHYDRAMINE HCL [Concomitant]

REACTIONS (5)
  - AKATHISIA [None]
  - DEPRESSION [None]
  - FORMICATION [None]
  - HEADACHE [None]
  - PHARMACEUTICAL PRODUCT COMPLAINT [None]
